FAERS Safety Report 20187600 (Version 1)
Quarter: 2021Q4

REPORT INFORMATION
  Report Type: Spontaneous
  Country: US (occurrence: None)
  Receive Date: 20211215
  Receipt Date: 20211215
  Transmission Date: 20220303
  Serious: Yes (Other)
  Sender: FDA-Public Use
  Company Number: None

PATIENT
  Age: 14 Year
  Sex: Female
  Weight: 47.9 kg

DRUGS (1)
  1. REGEN-COV [Suspect]
     Active Substance: CASIRIVIMAB\IMDEVIMAB
     Indication: COVID-19
     Dates: start: 20211110, end: 20211110

REACTIONS (5)
  - Fatigue [None]
  - Nausea [None]
  - Pain [None]
  - Tremor [None]
  - Hypophagia [None]

NARRATIVE: CASE EVENT DATE: 20211207
